FAERS Safety Report 16520286 (Version 1)
Quarter: 2019Q3

REPORT INFORMATION
  Report Type: Spontaneous
  Country: NL (occurrence: NL)
  Receive Date: 20190702
  Receipt Date: 20190702
  Transmission Date: 20191004
  Serious: Yes (Other)
  Sender: FDA-Public Use
  Company Number: NL-TEVA-2019-NL-1071034

PATIENT
  Age: 64 Year
  Sex: Female

DRUGS (6)
  1. PANTOPRAZOL MAAGSAPRESISTENTE TABLET, 20 MG (MILLIGRAM) [Suspect]
     Active Substance: PANTOPRAZOLE SODIUM
     Indication: PROPHYLAXIS AGAINST GASTROINTESTINAL ULCER
     Dosage: 1DD 1 ITEM, 20 MG
     Dates: start: 201901, end: 201904
  2. LORMETAZEPAM TABLET 2MG [Concomitant]
     Dosage: 2 MG IF NECESSARY FOR THE NIGHT
  3. NAPROXEN TABLET 250MG [Concomitant]
     Dosage: 250 MG, TWICE DAILY
     Dates: start: 201901
  4. OXAZEPAM TABLET 10MG [Concomitant]
     Dosage: 10 MG FOR THE NIGHT
  5. TEMAZEPAM TABLET 10MG [Concomitant]
     Dosage: 10 MG IF NECESSARY FOR THE NIGHT
  6. ESCITALOPRAM TABLET 15MG [Concomitant]
     Dosage: 15 MG
     Dates: start: 201812

REACTIONS (1)
  - Neutropenia [Recovered/Resolved]

NARRATIVE: CASE EVENT DATE: 201902
